FAERS Safety Report 6748473-3 (Version None)
Quarter: 2010Q2

REPORT INFORMATION
  Report Type: 
  Country: None (occurrence: None)
  Receive Date: 20100527
  Receipt Date: 20100527
  Transmission Date: 20101027
  Serious: No
  Sender: FDA-Public Use
  Company Number: None

PATIENT
  Sex: Male

DRUGS (8)
  1. DIAZEPAM [Suspect]
     Indication: MUSCLE RELAXANT THERAPY
     Dosage: 1 NIGHTLY
     Dates: start: 20100511
  2. DIAZEPAM [Suspect]
     Indication: SLEEP DISORDER
     Dosage: 1 NIGHTLY
     Dates: start: 20100511
  3. DIAZEPAM [Suspect]
     Indication: MUSCLE RELAXANT THERAPY
     Dosage: 1 NIGHTLY
     Dates: start: 20100512
  4. DIAZEPAM [Suspect]
     Indication: SLEEP DISORDER
     Dosage: 1 NIGHTLY
     Dates: start: 20100512
  5. DIAZEPAM [Suspect]
     Indication: MUSCLE RELAXANT THERAPY
     Dosage: 1 NIGHTLY
     Dates: start: 20100513
  6. DIAZEPAM [Suspect]
     Indication: SLEEP DISORDER
     Dosage: 1 NIGHTLY
     Dates: start: 20100513
  7. DIAZEPAM [Suspect]
     Indication: MUSCLE RELAXANT THERAPY
     Dosage: 1 NIGHTLY
     Dates: start: 20100514
  8. DIAZEPAM [Suspect]
     Indication: SLEEP DISORDER
     Dosage: 1 NIGHTLY
     Dates: start: 20100514

REACTIONS (3)
  - ASTHENIA [None]
  - NAUSEA [None]
  - PALLOR [None]
